FAERS Safety Report 5096525-9 (Version None)
Quarter: 2006Q3

REPORT INFORMATION
  Report Type: 
  Country: None (occurrence: None)
  Receive Date: 20060830
  Receipt Date: 20060818
  Transmission Date: 20061208
  Serious: Yes (Hospitalization)
  Sender: FDA-Public Use
  Company Number: E2020-00099-SPO-JP

PATIENT
  Age: 79 Year
  Sex: Female

DRUGS (6)
  1. ARICEPT [Suspect]
     Indication: DEMENTIA ALZHEIMER'S TYPE
     Dosage: 3 MG, 1 IN 1 D, ORAL
     Route: 048
     Dates: start: 20060425, end: 20060509
  2. RISPERDAL [Concomitant]
  3. MEILAX (ETHYL LOFLAZEPATE) [Concomitant]
  4. PANTOSIN (PANTETHINE) [Concomitant]
  5. MIRADOL (SULPIRIDE) [Concomitant]
  6. TASMOLIN (BIPERIDEN) [Concomitant]

REACTIONS (5)
  - ANOREXIA [None]
  - DEPRESSED LEVEL OF CONSCIOUSNESS [None]
  - HYPERREFLEXIA [None]
  - HYPERSOMNIA [None]
  - HYPOTONIA [None]
